FAERS Safety Report 7090486-9 (Version None)
Quarter: 2010Q4

REPORT INFORMATION
  Report Type: 
  Country: None (occurrence: None)
  Receive Date: 20101012
  Receipt Date: 20100209
  Transmission Date: 20110411
  Serious: Yes (Other)
  Sender: FDA-Public Use
  Company Number: 1000011751

PATIENT
  Age: 59 Year
  Sex: Female

DRUGS (3)
  1. LEXAPRO [Suspect]
     Indication: DEPRESSION
     Dosage: 20 MG (20 MG,1 IN 1 D),ORAL
     Route: 048
     Dates: start: 20080801
  2. CLONAZEPAM (0.25 MILLIGRAM, TABLETS) [Concomitant]
  3. AMBIEN CR [Concomitant]

REACTIONS (1)
  - GLAUCOMA [None]
